FAERS Safety Report 17009929 (Version 1)
Quarter: 2019Q4

REPORT INFORMATION
  Report Type: Spontaneous
  Country: JP (occurrence: JP)
  Receive Date: 20191108
  Receipt Date: 20191108
  Transmission Date: 20200122
  Serious: Yes (Death, Other)
  Sender: FDA-Public Use
  Company Number: JP-JAZZ-2019-JP-015328

PATIENT
  Sex: Male

DRUGS (2)
  1. DEFITELIO [Suspect]
     Active Substance: DEFIBROTIDE SODIUM
     Indication: VENOOCCLUSIVE LIVER DISEASE
     Dosage: 1600 MG
     Route: 042
     Dates: start: 20191028, end: 20191101
  2. RECOMODULIN [Suspect]
     Active Substance: THROMBOMODULIN ALFA
     Indication: VENOOCCLUSIVE LIVER DISEASE
     Dosage: UNK
     Dates: start: 20191102, end: 20191104

REACTIONS (2)
  - Cerebral haemorrhage [Fatal]
  - Intentional product use issue [Unknown]

NARRATIVE: CASE EVENT DATE: 20191028
